FAERS Safety Report 7204405-5 (Version None)
Quarter: 2010Q4

REPORT INFORMATION
  Report Type: 
  Country: None (occurrence: None)
  Receive Date: 20101230
  Receipt Date: 20101221
  Transmission Date: 20110411
  Serious: Yes (Hospitalization)
  Sender: FDA-Public Use
  Company Number: US-ASTRAZENECA-2010SE57103

PATIENT
  Age: 70 Year
  Sex: Male
  Weight: 81.6 kg

DRUGS (6)
  1. PRILOSEC [Suspect]
     Indication: GASTROOESOPHAGEAL REFLUX DISEASE
     Route: 048
     Dates: start: 20080901, end: 20101001
  2. PRILOSEC [Suspect]
     Indication: REFLUX LARYNGITIS
     Route: 048
     Dates: start: 20080901, end: 20101001
  3. HYTRIN [Concomitant]
  4. DIOVAN [Concomitant]
  5. ASPIRIN [Concomitant]
  6. CENTRUM SILVER [Concomitant]

REACTIONS (6)
  - DIZZINESS [None]
  - DRUG DOSE OMISSION [None]
  - DUODENAL ULCER [None]
  - FAECES DISCOLOURED [None]
  - GASTROINTESTINAL HAEMORRHAGE [None]
  - GASTROOESOPHAGEAL REFLUX DISEASE [None]
